FAERS Safety Report 5242024-0 (Version None)
Quarter: 2007Q1

REPORT INFORMATION
  Report Type: 
  Country: None (occurrence: None)
  Receive Date: 20070212
  Receipt Date: 20070130
  Transmission Date: 20070707
  Serious: Yes (Other)
  Sender: FDA-Public Use
  Company Number: SPV1-2007-00453

PATIENT
  Age: 12 Year
  Sex: Male
  Weight: 32.9 kg

DRUGS (1)
  1. DAYTRANA [Suspect]
     Indication: ATTENTION DEFICIT/HYPERACTIVITY DISORDER
     Dosage: 15 MG, TRANSDERMAL
     Route: 062
     Dates: start: 20061201

REACTIONS (5)
  - APPLICATION SITE ERYTHEMA [None]
  - APPLICATION SITE INFECTION [None]
  - APPLICATION SITE RASH [None]
  - DERMATITIS INFECTED [None]
  - RASH GENERALISED [None]
